FAERS Safety Report 7638388-0 (Version None)
Quarter: 2011Q3

REPORT INFORMATION
  Report Type: 
  Country: None (occurrence: None)
  Receive Date: 20110727
  Receipt Date: 20110715
  Transmission Date: 20111222
  Serious: Yes (Hospitalization)
  Sender: FDA-Public Use
  Company Number: MX-SANOFI-AVENTIS-2011SA045260

PATIENT
  Age: 21 Year
  Sex: Female
  Weight: 46 kg

DRUGS (8)
  1. DRONEDARONE HCL [Suspect]
     Route: 048
     Dates: start: 20110222
  2. DIGOXIN [Concomitant]
     Route: 065
  3. DRONEDARONE HCL [Suspect]
     Indication: ARRHYTHMIA
     Route: 048
     Dates: start: 20101001, end: 20110221
  4. FUROSEMIDE [Concomitant]
  5. SPIRONOLACTONE [Concomitant]
  6. ACENOCOUMAROL [Concomitant]
  7. DRONEDARONE HCL [Suspect]
     Route: 048
     Dates: end: 20110710
  8. CARVEDILOL [Concomitant]

REACTIONS (6)
  - HEPATIC FAILURE [None]
  - UNDERDOSE [None]
  - CARDIAC FAILURE [None]
  - PANCREATITIS ACUTE [None]
  - RENAL FAILURE [None]
  - HEPATOCELLULAR INJURY [None]
